FAERS Safety Report 24563194 (Version 1)
Quarter: 2024Q4

REPORT INFORMATION
  Report Type: Spontaneous
  Country: AU (occurrence: AU)
  Receive Date: 20241030
  Receipt Date: 20241030
  Transmission Date: 20250114
  Serious: Yes (Death, Life-Threatening)
  Sender: JOHNSON AND JOHNSON
  Company Number: AU-BAYER-2024A154691

PATIENT
  Age: 90 Year
  Sex: Female

DRUGS (1)
  1. RIVAROXABAN [Suspect]
     Active Substance: RIVAROXABAN
     Indication: Product used for unknown indication
     Route: 048

REACTIONS (2)
  - Upper gastrointestinal haemorrhage [Fatal]
  - Hypotension [Fatal]
